FAERS Safety Report 18481684 (Version 1)
Quarter: 2020Q4

REPORT INFORMATION
  Report Type: Spontaneous
  Country: FR (occurrence: FR)
  Receive Date: 20201109
  Receipt Date: 20201109
  Transmission Date: 20210114
  Serious: Yes (Other)
  Sender: FDA-Public Use
  Company Number: FR-ELI_LILLY_AND_COMPANY-FR202010013348

PATIENT
  Age: 71 Year
  Sex: Female

DRUGS (2)
  1. ABEMACICLIB [Suspect]
     Active Substance: ABEMACICLIB
     Indication: PRODUCT USED FOR UNKNOWN INDICATION
     Dosage: UNK UNK, UNKNOWN
     Route: 048
     Dates: end: 202008
  2. FASLODEX [Suspect]
     Active Substance: FULVESTRANT
     Indication: PRODUCT USED FOR UNKNOWN INDICATION
     Dosage: UNK UNK, UNKNOWN
     Route: 030
     Dates: start: 202007

REACTIONS (8)
  - Gait disturbance [Unknown]
  - Back pain [Unknown]
  - Eating disorder [Unknown]
  - Aspiration pleural cavity [Unknown]
  - Weight decreased [Unknown]
  - Liver disorder [Unknown]
  - Diarrhoea [Unknown]
  - Angiopathy [Unknown]

NARRATIVE: CASE EVENT DATE: 2020
